FAERS Safety Report 5150237-1 (Version None)
Quarter: 2006Q4

REPORT INFORMATION
  Report Type: 
  Country: None (occurrence: None)
  Receive Date: 20061109
  Receipt Date: 20061109
  Transmission Date: 20070319
  Serious: No
  Sender: FDA-Public Use
  Company Number: None

PATIENT
  Age: 57 Year
  Sex: Male

DRUGS (2)
  1. METRONIDAZOLE [Suspect]
     Indication: HELICOBACTER INFECTION
     Dosage: 2 TABS BID PO
     Route: 048
     Dates: start: 20061027, end: 20061107
  2. AMOXICILLIN [Suspect]
     Dosage: 1 CAP TID PO
     Route: 048

REACTIONS (2)
  - PRURITUS [None]
  - RASH [None]
